FAERS Safety Report 5320934-3 (Version None)
Quarter: 2007Q2

REPORT INFORMATION
  Report Type: 
  Country: None (occurrence: None)
  Receive Date: 20070504
  Receipt Date: 20070418
  Transmission Date: 20071010
  Serious: Yes (Hospitalization)
  Sender: FDA-Public Use
  Company Number: 2007BI008475

PATIENT
  Age: 44 Year
  Sex: Female

DRUGS (3)
  1. AVONEX [Suspect]
     Indication: MULTIPLE SCLEROSIS
     Dosage: 30 UG; QW; IM
     Route: 030
     Dates: start: 20060201
  2. CARBAMAZEPINE [Concomitant]
  3. GABAPENTIN [Concomitant]

REACTIONS (16)
  - BLADDER SPASM [None]
  - BLISTER [None]
  - DEMYELINATION [None]
  - DISEASE PROGRESSION [None]
  - EYE DISORDER [None]
  - FALL [None]
  - HEADACHE [None]
  - HEMIPLEGIA [None]
  - MULTIPLE SCLEROSIS [None]
  - MULTIPLE SCLEROSIS RELAPSE [None]
  - NAUSEA [None]
  - PAIN [None]
  - PARAPLEGIA [None]
  - SKULL FRACTURE [None]
  - URINARY TRACT INFECTION [None]
  - VOMITING [None]
